FAERS Safety Report 24659668 (Version 5)
Quarter: 2024Q4

REPORT INFORMATION
  Report Type: Spontaneous
  Country: AU (occurrence: AU)
  Receive Date: 20241125
  Receipt Date: 20241218
  Transmission Date: 20250115
  Serious: Yes (Hospitalization, Other)
  Sender: Vantive US Healthcare
  Company Number: AU-VANTIVE-2024VAN021316

PATIENT
  Age: 21 Year
  Sex: Female

DRUGS (3)
  1. CALCIUM CHLORIDE [Suspect]
     Active Substance: CALCIUM CHLORIDE
     Indication: Mineral supplementation
     Dosage: 20 GM PER 680 MMOL/L 50 ML SYRINGE, 5 TIMES AMPULES 6.8GMS IN 50 MIS
     Route: 042
     Dates: start: 20241029, end: 20241029
  2. CALCIUM CHLORIDE [Suspect]
     Active Substance: CALCIUM CHLORIDE
     Indication: Continuous haemodiafiltration
  3. CITRATE [Suspect]
     Active Substance: CITRIC ACID MONOHYDRATE
     Indication: Mineral supplementation
     Dosage: UNK
     Route: 042
     Dates: start: 20241029

REACTIONS (10)
  - Calcium deficiency [Unknown]
  - Soft tissue necrosis [Recovering/Resolving]
  - Skin necrosis [Recovering/Resolving]
  - Blister [Recovering/Resolving]
  - Skin exfoliation [Unknown]
  - Skin discolouration [Unknown]
  - Extravasation [Recovering/Resolving]
  - Wound [Recovering/Resolving]
  - Wrong technique in product usage process [Unknown]
  - Product administration error [Unknown]

NARRATIVE: CASE EVENT DATE: 20241029
